FAERS Safety Report 6952202-8 (Version None)
Quarter: 2010Q3

REPORT INFORMATION
  Report Type: 
  Country: None (occurrence: None)
  Receive Date: 20100829
  Receipt Date: 20100514
  Transmission Date: 20110219
  Serious: No
  Sender: FDA-Public Use
  Company Number: US-ABBOTT-10P-163-0620689-00

PATIENT
  Sex: Male
  Weight: 96.248 kg

DRUGS (8)
  1. NIASPAN [Suspect]
     Indication: LOW DENSITY LIPOPROTEIN INCREASED
     Dates: start: 20091201
  2. NIASPAN [Suspect]
     Dates: start: 20090301
  3. LIPITOR [Concomitant]
     Indication: BLOOD CHOLESTEROL
  4. BENICAR [Concomitant]
     Indication: HYPERTENSION
  5. METOPROLOL [Concomitant]
     Indication: HYPERTENSION
  6. UNKNOWN EYE MEDICATION [Concomitant]
     Indication: GLAUCOMA
  7. MULTI-VITAMIN [Concomitant]
     Indication: PRODUCT USED FOR UNKNOWN INDICATION
  8. FISH OIL [Concomitant]
     Indication: PRODUCT USED FOR UNKNOWN INDICATION

REACTIONS (6)
  - DRUG INEFFECTIVE [None]
  - ERYTHEMA [None]
  - FLUSHING [None]
  - HIGH DENSITY LIPOPROTEIN ABNORMAL [None]
  - LOW DENSITY LIPOPROTEIN ABNORMAL [None]
  - TACHYCARDIA [None]
